FAERS Safety Report 18129181 (Version 1)
Quarter: 2020Q3

REPORT INFORMATION
  Report Type: Spontaneous
  Country: US (occurrence: US)
  Receive Date: 20200807
  Receipt Date: 20200807
  Transmission Date: 20201103
  Serious: Yes (Hospitalization)
  Sender: FDA-Public Use
  Company Number: None

PATIENT
  Sex: Female

DRUGS (24)
  1. IPRATROPIUM [Concomitant]
     Active Substance: IPRATROPIUM
  2. NYSTOP [Concomitant]
     Active Substance: NYSTATIN
  3. SUCRALFATE. [Concomitant]
     Active Substance: SUCRALFATE
  4. FLOVENT HFA [Concomitant]
     Active Substance: FLUTICASONE PROPIONATE
  5. MUPIROCAN [Concomitant]
  6. POT CHLORIDE [Concomitant]
     Active Substance: POTASSIUM CHLORIDE
  7. PREDNISONE. [Concomitant]
     Active Substance: PREDNISONE
  8. IPRATOPIUM/SOL ALBUTER [Concomitant]
  9. SCOPOLAMINES DIS [Concomitant]
  10. SUMATRIPTAN. [Concomitant]
     Active Substance: SUMATRIPTAN
  11. FLUNCONAZOLE [Concomitant]
  12. AMOX/K CLAV [Concomitant]
     Active Substance: AMOXICILLIN\CLAVULANATE POTASSIUM
  13. TRAZODONEGLYCOPYRROL [Concomitant]
  14. LANSOPRAZOLE. [Concomitant]
     Active Substance: LANSOPRAZOLE
  15. PREDNISOLONE. [Concomitant]
     Active Substance: PREDNISOLONE
  16. SOD CHLORIDE [Concomitant]
     Active Substance: SODIUM CHLORIDE
  17. TOBRAMYCIN 300MG/5ML 20ML [Suspect]
     Active Substance: TOBRAMYCIN
     Indication: LUNG DISORDER
     Dosage: ?          OTHER DOSE:1 AMP;OTHER ROUTE:INH 28D ON 28 D OFF?
     Route: 055
     Dates: start: 20130301
  18. BACLOFEN. [Concomitant]
     Active Substance: BACLOFEN
  19. CIPROFLOXACN [Concomitant]
     Active Substance: CIPROFLOXACIN
  20. ZOVIRAX CRE [Concomitant]
  21. FUROSEMIDE. [Concomitant]
     Active Substance: FUROSEMIDE
  22. SULFASALAZINE DELAYED?RELEASE [Concomitant]
     Active Substance: SULFASALAZINE
  23. RANITIDINE. [Concomitant]
     Active Substance: RANITIDINE
  24. STERIL WATER SOL IRRIG [Concomitant]

REACTIONS (2)
  - Condition aggravated [None]
  - Pneumonia [None]
